FAERS Safety Report 7692537-7 (Version None)
Quarter: 2011Q3

REPORT INFORMATION
  Report Type: 
  Country: None (occurrence: None)
  Receive Date: 20110819
  Receipt Date: 20110812
  Transmission Date: 20111222
  Serious: Yes (Hospitalization)
  Sender: FDA-Public Use
  Company Number: US-MERCK-1107USA02804

PATIENT
  Age: 53 Year
  Sex: Female

DRUGS (5)
  1. ASPIRIN [Concomitant]
     Route: 065
  2. LEXAPRO [Concomitant]
     Route: 065
  3. XANAX [Concomitant]
     Route: 065
  4. MAXALT [Suspect]
     Indication: MIGRAINE
     Route: 048
     Dates: end: 20110718
  5. OMEGA-3 MARINE TRIGLYCERIDES [Concomitant]
     Route: 065

REACTIONS (1)
  - SUBARACHNOID HAEMORRHAGE [None]
